FAERS Safety Report 4469461-6 (Version None)
Quarter: 2004Q4

REPORT INFORMATION
  Report Type: 
  Country: None (occurrence: None)
  Receive Date: 20041005
  Receipt Date: 20040922
  Transmission Date: 20050328
  Serious: Yes (Other)
  Sender: FDA-Public Use
  Company Number: 2004069288

PATIENT
  Age: 51 Year
  Sex: Female
  Weight: 81.6475 kg

DRUGS (4)
  1. LIPITOR [Suspect]
     Indication: BLOOD CHOLESTEROL INCREASED
     Dosage: (1 IN 1 D),
     Dates: start: 19940101, end: 20030101
  2. METFORMIN HCL [Suspect]
     Indication: BLOOD GLUCOSE INCREASED
     Dates: start: 19940101, end: 20030101
  3. ANASTROZOLE (ANASTROZOLE) [Suspect]
     Indication: BREAST CANCER
     Dosage: 1 MG (1 MG, 1 IN 1 D)
     Dates: start: 20040901
  4. ESTROGEN NOS (ESTROGEN NOS) [Concomitant]

REACTIONS (10)
  - BLOOD GLUCOSE INCREASED [None]
  - BREAST CANCER [None]
  - CYSTITIS [None]
  - FACE OEDEMA [None]
  - GASTROINTESTINAL DISORDER [None]
  - LOCALISED OEDEMA [None]
  - OEDEMA MOUTH [None]
  - PHARYNGEAL OEDEMA [None]
  - SWELLING [None]
  - TONGUE OEDEMA [None]
